FAERS Safety Report 4851292-6 (Version None)
Quarter: 2005Q4

REPORT INFORMATION
  Report Type: 
  Country: None (occurrence: None)
  Receive Date: 20051212
  Receipt Date: 20051205
  Transmission Date: 20060501
  Serious: Yes (Hospitalization, Other)
  Sender: FDA-Public Use
  Company Number: US-AVENTIS-200520711GDDC

PATIENT
  Age: 49 Year
  Sex: Female
  Weight: 94 kg

DRUGS (9)
  1. TAXOTERE [Suspect]
     Indication: NEOPLASM MALIGNANT
     Dosage: DOSE: 90 MG
     Route: 042
     Dates: end: 20051123
  2. CETUXIMAB [Suspect]
     Indication: NEOPLASM MALIGNANT
     Dosage: DOSE: 2300 MG
     Route: 042
     Dates: start: 20051103, end: 20051123
  3. RADIOTHERAPY [Suspect]
     Indication: NEOPLASM MALIGNANT
     Dosage: DOSE: 2GY/DAY
     Dates: end: 20051128
  4. ACTIQ [Concomitant]
  5. ACTOS [Concomitant]
  6. ATIVAN [Concomitant]
  7. DURAGESIC-100 [Concomitant]
  8. LORTAB [Concomitant]
  9. OXAZEPAM [Concomitant]

REACTIONS (4)
  - HYPOXIA [None]
  - MUCOSAL INFLAMMATION [None]
  - ORAL PAIN [None]
  - SOMNOLENCE [None]
